FAERS Safety Report 21872806 (Version 2)
Quarter: 2023Q1

REPORT INFORMATION
  Report Type: Spontaneous
  Country: US (occurrence: US)
  Receive Date: 20230117
  Receipt Date: 20230216
  Transmission Date: 20230418
  Serious: Yes (Hospitalization)
  Sender: FDA-Public Use
  Company Number: US-ABBVIE-4272378

PATIENT
  Sex: Female

DRUGS (3)
  1. DEPAKOTE [Suspect]
     Active Substance: DIVALPROEX SODIUM
     Indication: Product used for unknown indication
     Route: 048
  2. RECORLEV [Suspect]
     Active Substance: LEVOKETOCONAZOLE
     Indication: Adrenal disorder
     Dosage: FORM STRENGTH: 150 MILLIGRAM
     Route: 048
     Dates: start: 20221114
  3. INVEGA SUSTENNA [Concomitant]
     Active Substance: PALIPERIDONE PALMITATE
     Indication: Product used for unknown indication

REACTIONS (21)
  - Hospitalisation [Unknown]
  - Lip dry [Unknown]
  - Nausea [Recovering/Resolving]
  - Illness [Recovering/Resolving]
  - Skin striae [Recovering/Resolving]
  - Vaginal haemorrhage [Unknown]
  - Memory impairment [Unknown]
  - Feeling abnormal [Unknown]
  - Female reproductive tract disorder [Unknown]
  - Drug interaction [Recovering/Resolving]
  - Psychotic disorder [Recovering/Resolving]
  - Weight decreased [Recovering/Resolving]
  - Anxiety [Unknown]
  - COVID-19 [Unknown]
  - Mental disorder [Recovering/Resolving]
  - Vomiting [Recovering/Resolving]
  - Adverse drug reaction [Unknown]
  - Anxiety [Recovering/Resolving]
  - Stress [Unknown]
  - Unevaluable event [Unknown]
  - Therapeutic response unexpected [Unknown]

NARRATIVE: CASE EVENT DATE: 20220101
